FAERS Safety Report 17349519 (Version 1)
Quarter: 2020Q1

REPORT INFORMATION
  Report Type: Spontaneous
  Country: US (occurrence: US)
  Receive Date: 20200130
  Receipt Date: 20200130
  Transmission Date: 20200409
  Serious: No
  Sender: FDA-Public Use
  Company Number: US-SA-2020SA021510

PATIENT
  Age: 69 Year
  Sex: Female

DRUGS (1)
  1. AUBAGIO [Suspect]
     Active Substance: TERIFLUNOMIDE
     Indication: MULTIPLE SCLEROSIS
     Dosage: 1 TABLET, QD
     Route: 048
     Dates: start: 201912

REACTIONS (4)
  - Migraine [Unknown]
  - Neck pain [Unknown]
  - Pain in extremity [Unknown]
  - Condition aggravated [Unknown]
